FAERS Safety Report 5455364-7 (Version None)
Quarter: 2007Q3

REPORT INFORMATION
  Report Type: 
  Country: None (occurrence: None)
  Receive Date: 20070914
  Receipt Date: 20070831
  Transmission Date: 20080115
  Serious: Yes (Hospitalization, Other)
  Sender: FDA-Public Use
  Company Number: RENA-12286

PATIENT
  Age: 62 Year
  Sex: Female

DRUGS (8)
  1. RENAGEL [Suspect]
     Indication: HYPERPHOSPHATAEMIA
     Dosage: 3.2 G DAILY
  2. RENAGEL [Suspect]
  3. LEVOTHYROXINE SODIUM [Concomitant]
  4. AMLODIPINE [Concomitant]
  5. ENALAPRIL MALEATE [Concomitant]
  6. ESOMEPRAZOLE MAGNESIUM [Concomitant]
  7. PARACETAMOL [Concomitant]
  8. VITAMIN B COMPLEX CAP [Concomitant]

REACTIONS (3)
  - ARTERIOVENOUS FISTULA SITE COMPLICATION [None]
  - DRUG INTERACTION [None]
  - HYPOTHYROIDISM [None]
